FAERS Safety Report 16836065 (Version 1)
Quarter: 2019Q3

REPORT INFORMATION
  Report Type: Spontaneous
  Country: US (occurrence: US)
  Receive Date: 20190921
  Receipt Date: 20190921
  Transmission Date: 20191005
  Serious: Yes (Hospitalization)
  Sender: FDA-Public Use
  Company Number: US-ZYDUS-040928

PATIENT
  Age: 29 Year
  Sex: Female

DRUGS (2)
  1. 17A-ESTRADIOL/ESTRADIOL/ESTRADIOL BENZOATE/ESTRADIOL CIPIONATE/ESTRADIOL DIPROPIONATE/ESTRADIOL ENAN [Concomitant]
     Indication: HORMONE REPLACEMENT THERAPY
     Route: 065
  2. SPIRONOLACTONE. [Suspect]
     Active Substance: SPIRONOLACTONE
     Indication: HORMONE REPLACEMENT THERAPY
     Route: 048
     Dates: start: 20190908, end: 20190911

REACTIONS (3)
  - Dizziness [Not Recovered/Not Resolved]
  - Product use in unapproved indication [Recovered/Resolved]
  - Diplopia [Not Recovered/Not Resolved]

NARRATIVE: CASE EVENT DATE: 20190908
